FAERS Safety Report 12890666 (Version 1)
Quarter: 2016Q4

REPORT INFORMATION
  Report Type: Spontaneous
  Country: US (occurrence: US)
  Receive Date: 20161027
  Receipt Date: 20161027
  Transmission Date: 20170207
  Serious: No
  Sender: FDA-Public Use
  Company Number: US-JAZZ-2016-US-015739

PATIENT
  Sex: Female

DRUGS (28)
  1. AMITIZA [Concomitant]
     Active Substance: LUBIPROSTONE
  2. PANGESTYME [Concomitant]
  3. NUVIGIL [Concomitant]
     Active Substance: ARMODAFINIL
  4. BUSPIRONE HCL [Concomitant]
     Active Substance: BUSPIRONE HYDROCHLORIDE
  5. ROZEREM [Concomitant]
     Active Substance: RAMELTEON
  6. CYMBALTA [Concomitant]
     Active Substance: DULOXETINE HYDROCHLORIDE
  7. CYTOMEL [Concomitant]
     Active Substance: LIOTHYRONINE SODIUM
  8. TESTIM [Concomitant]
     Active Substance: TESTOSTERONE
  9. XYREM [Suspect]
     Active Substance: SODIUM OXYBATE
     Indication: NARCOLEPSY
     Dosage: 2 G, BID
     Route: 048
     Dates: start: 200607, end: 200607
  10. XYREM [Suspect]
     Active Substance: SODIUM OXYBATE
     Dosage: 3.25 G, SECOND  DOSE
     Route: 048
     Dates: start: 201509
  11. ABILIFY [Concomitant]
     Active Substance: ARIPIPRAZOLE
  12. FIORINAL [Concomitant]
     Active Substance: ASPIRIN\BUTALBITAL\CAFFEINE
  13. PRILOSEC [Concomitant]
     Active Substance: OMEPRAZOLE MAGNESIUM
  14. REMERON [Concomitant]
     Active Substance: MIRTAZAPINE
  15. XYREM [Suspect]
     Active Substance: SODIUM OXYBATE
     Dosage: 3.75 G, FIRST DOSE
     Route: 048
     Dates: start: 201509
  16. LINZESS [Concomitant]
     Active Substance: LINACLOTIDE
  17. ALLEGRA D-12 HOUR [Concomitant]
     Active Substance: FEXOFENADINE HYDROCHLORIDE\PSEUDOEPHEDRINE HYDROCHLORIDE
  18. MOTRIN [Concomitant]
     Active Substance: IBUPROFEN
  19. ORPHENADRINE [Concomitant]
     Active Substance: ORPHENADRINE
  20. ALPRAZOLAM. [Concomitant]
     Active Substance: ALPRAZOLAM
  21. PROVIGIL [Concomitant]
     Active Substance: MODAFINIL
  22. TYLENOL WITH CODEINE [Concomitant]
     Active Substance: ACETAMINOPHEN\CODEINE PHOSPHATE
  23. VITAMIN B12 [Concomitant]
     Active Substance: CYANOCOBALAMIN
  24. VALTREX [Concomitant]
     Active Substance: VALACYCLOVIR HYDROCHLORIDE
  25. XYREM [Suspect]
     Active Substance: SODIUM OXYBATE
     Dosage: DOSE ADJUSTMENTS
     Route: 048
     Dates: start: 200607, end: 201508
  26. XANAX [Concomitant]
     Active Substance: ALPRAZOLAM
  27. SEROQUEL [Concomitant]
     Active Substance: QUETIAPINE FUMARATE
  28. SKELAXIN [Concomitant]
     Active Substance: METAXALONE

REACTIONS (1)
  - Feeling cold [Not Recovered/Not Resolved]
